FAERS Safety Report 10095543 (Version 5)
Quarter: 2015Q4

REPORT INFORMATION
  Report Type: Report from Study
  Country: JP (occurrence: JP)
  Receive Date: 20140422
  Receipt Date: 20151119
  Transmission Date: 20160304
  Serious: Yes (Death, Other)
  Sender: FDA-Public Use
  Company Number: JP-BAYER-2014-056768

PATIENT
  Age: 62 Year
  Sex: Female
  Weight: 51 kg

DRUGS (17)
  1. KERATINAMIN [Concomitant]
     Active Substance: UREA
     Indication: DRUG TOXICITY PROPHYLAXIS
     Dosage: UNK
     Route: 061
  2. HYDROPHILIC [Concomitant]
     Indication: DRUG TOXICITY PROPHYLAXIS
     Dosage: UNK
     Route: 061
  3. ALLOID G [Concomitant]
     Active Substance: SODIUM ALGINATE
     Indication: CONSTIPATION PROPHYLAXIS
     Dosage: UNK
     Route: 048
     Dates: start: 20131107, end: 20140313
  4. MOHRUS [Concomitant]
     Active Substance: KETOPROFEN
     Indication: MUSCULOSKELETAL STIFFNESS
     Dosage: DAILY DOSE 1 DF
     Route: 062
     Dates: start: 20131227, end: 20140313
  5. STIVARGA [Suspect]
     Active Substance: REGORAFENIB
     Indication: GASTROINTESTINAL STROMAL TUMOUR
     Dosage: 120 MG QD, 3 WEEKS ON, 1 WEEK OFF
     Route: 048
     Dates: start: 20131107, end: 20131121
  6. BROTIZOLAM [Concomitant]
     Active Substance: BROTIZOLAM
     Dosage: DAILY DOSE .25 MG
     Route: 048
  7. STIVARGA [Suspect]
     Active Substance: REGORAFENIB
     Indication: GASTROINTESTINAL STROMAL TUMOUR
     Dosage: 160 MG QD; 3 WEEKS ON, 1 WEEK OFF
     Route: 048
     Dates: start: 20131023, end: 20131106
  8. STIVARGA [Suspect]
     Active Substance: REGORAFENIB
     Indication: GASTROINTESTINAL STROMAL TUMOUR
     Dosage: 80 MG, QD; 3 WEEKS ON, 1 WEEK OFF
     Route: 048
     Dates: start: 20131213, end: 20131227
  9. PURSENNID [Concomitant]
     Active Substance: SENNOSIDES A AND B
     Indication: CONSTIPATION PROPHYLAXIS
     Dosage: DAILY DOSE 24 MG
     Route: 048
     Dates: start: 20131107
  10. TERNELIN [Concomitant]
     Active Substance: TIZANIDINE
     Indication: MUSCULOSKELETAL STIFFNESS
     Dosage: DAILY DOSE 3 MG
     Route: 048
     Dates: start: 20131203, end: 20140123
  11. STIVARGA [Suspect]
     Active Substance: REGORAFENIB
     Indication: GASTROINTESTINAL STROMAL TUMOUR
     Dosage: 120MG, QD
     Route: 048
     Dates: start: 20140313, end: 20150207
  12. STIVARGA [Suspect]
     Active Substance: REGORAFENIB
     Indication: GASTROINTESTINAL STROMAL TUMOUR
     Dosage: 120MG, QD
     Route: 048
     Dates: start: 20131128, end: 20131205
  13. REBAMIPIDE [Concomitant]
     Active Substance: REBAMIPIDE
     Dosage: DAILY DOSE 300 MG
     Route: 048
     Dates: end: 20131107
  14. LANSOPRAZOLE. [Concomitant]
     Active Substance: LANSOPRAZOLE
     Dosage: DAILY DOSE 30 MG
     Route: 048
  15. AMLODIPINE [Concomitant]
     Active Substance: AMLODIPINE BESYLATE
     Route: 048
  16. LOXOPROFEN [Concomitant]
     Active Substance: LOXOPROFEN
     Dosage: DAILY DOSE 180 MG
     Route: 048
     Dates: end: 20131128
  17. GENTACIN [Concomitant]
     Active Substance: GENTAMICIN SULFATE
     Indication: DRUG TOXICITY PROPHYLAXIS
     Dosage: FREQUENCY: QS
     Route: 061

REACTIONS (5)
  - Atrial fibrillation [Not Recovered/Not Resolved]
  - Pharyngitis [Recovered/Resolved]
  - Pain [Recovering/Resolving]
  - Constipation [Recovering/Resolving]
  - Palmar-plantar erythrodysaesthesia syndrome [Recovering/Resolving]

NARRATIVE: CASE EVENT DATE: 20131121
